FAERS Safety Report 6810525-7 (Version None)
Quarter: 2010Q2

REPORT INFORMATION
  Report Type: 
  Country: None (occurrence: None)
  Receive Date: 20100630
  Receipt Date: 20100616
  Transmission Date: 20101027
  Serious: Yes (Life-Threatening, Hospitalization)
  Sender: FDA-Public Use
  Company Number: GB-ELI_LILLY_AND_COMPANY-GB201005005981

PATIENT
  Sex: Female
  Weight: 70.4 kg

DRUGS (8)
  1. FORTEO [Suspect]
     Indication: OSTEOPOROSIS
     Dosage: 20 UG, DAILY (1/D)
     Route: 058
     Dates: start: 20090312, end: 20100513
  2. OMEPRAZOLE [Concomitant]
     Dosage: 40 MG, UNK
  3. LEVOTHYROXINE SODIUM [Concomitant]
     Indication: HYPOTHYROIDISM
     Dosage: 175 UG, UNK
     Route: 048
  4. BISOPROLOL FUMARATE [Concomitant]
     Dosage: 2.5 MG, UNK
     Route: 048
  5. PHENYTOIN [Concomitant]
     Dosage: 100 UG, UNK
  6. AMLODIPINE [Concomitant]
     Dosage: 5 UG, UNK
  7. DIPYRIDAMOLE [Concomitant]
     Dosage: 200 MG, UNK
     Route: 048
  8. HYDROCORTISONE [Concomitant]
     Dosage: 15 MG, UNK
     Route: 048

REACTIONS (2)
  - COMA [None]
  - CONVULSION [None]
